FAERS Safety Report 23958524 (Version 1)
Quarter: 2024Q2

REPORT INFORMATION
  Report Type: Spontaneous
  Country: US (occurrence: US)
  Receive Date: 20240610
  Receipt Date: 20240610
  Transmission Date: 20240715
  Serious: Yes (Hospitalization, Other)
  Sender: FDA-Public Use
  Company Number: US-BEH-2024173189

PATIENT
  Age: 79 Year
  Sex: Female

DRUGS (3)
  1. HIZENTRA [Suspect]
     Active Substance: HUMAN IMMUNOGLOBULIN G
     Indication: Product used for unknown indication
     Dosage: 10 G
     Route: 065
  2. HIZENTRA [Suspect]
     Active Substance: HUMAN IMMUNOGLOBULIN G
     Dosage: 4 G
     Route: 065
  3. HIZENTRA [Suspect]
     Active Substance: HUMAN IMMUNOGLOBULIN G
     Dosage: 1 G
     Route: 065

REACTIONS (8)
  - Ataxia [Unknown]
  - Malaise [Unknown]
  - Nausea [Unknown]
  - Chills [Unknown]
  - Headache [Unknown]
  - Arthralgia [Unknown]
  - Confusional state [Unknown]
  - Fall [Unknown]
